FAERS Safety Report 9219258 (Version 1)
Quarter: 2013Q2

REPORT INFORMATION
  Report Type: Spontaneous
  Country: US (occurrence: None)
  Receive Date: 20130408
  Receipt Date: 20130408
  Transmission Date: 20140414
  Serious: Yes (Death)
  Sender: FDA-Public Use
  Company Number: None

PATIENT
  Age: 66 Year
  Sex: Female
  Weight: 65.6 kg

DRUGS (1)
  1. FERAHEME [Suspect]
     Indication: ANAEMIA
     Dosage: 510MG/17ML, ONCE, IV
     Route: 042
     Dates: start: 20130322, end: 20130322

REACTIONS (3)
  - Nausea [None]
  - Dyspnoea [None]
  - Anaphylactic reaction [None]
